FAERS Safety Report 25025422 (Version 1)
Quarter: 2025Q1

REPORT INFORMATION
  Report Type: Spontaneous
  Country: DE (occurrence: DE)
  Receive Date: 20250228
  Receipt Date: 20250228
  Transmission Date: 20250409
  Serious: Yes (Other)
  Sender: ELI LILLY AND COMPANY
  Company Number: DE-PROCTER+GAMBLE-PH25000635

PATIENT
  Age: 35 Year
  Sex: Female
  Weight: 65 kg

DRUGS (12)
  1. DULOXETINE HYDROCHLORIDE [Suspect]
     Active Substance: DULOXETINE HYDROCHLORIDE
     Indication: Product used for unknown indication
     Dosage: 7 DOSAGE FORM, DAILY
     Route: 048
     Dates: end: 20250122
  2. DULOXETINE HYDROCHLORIDE [Suspect]
     Active Substance: DULOXETINE HYDROCHLORIDE
     Route: 048
  3. CHOLECALCIFEROL [Suspect]
     Active Substance: CHOLECALCIFEROL
     Indication: Product used for unknown indication
     Dosage: 7 DOSAGE FORM, DAILY
     Route: 048
     Dates: end: 20250122
  4. CHOLECALCIFEROL [Suspect]
     Active Substance: CHOLECALCIFEROL
     Route: 048
  5. LEVOTHYROXINE SODIUM [Suspect]
     Active Substance: LEVOTHYROXINE SODIUM
     Indication: Product used for unknown indication
     Dosage: 7 DOSAGE FORM, DAILY
     Route: 048
     Dates: end: 20250122
  6. LEVOTHYROXINE SODIUM [Suspect]
     Active Substance: LEVOTHYROXINE SODIUM
     Route: 048
  7. MIRTAZAPINE [Suspect]
     Active Substance: MIRTAZAPINE
     Indication: Product used for unknown indication
     Dosage: 7 DOSAGE FORM, DAILY
     Route: 048
     Dates: end: 20250122
  8. MIRTAZAPINE [Suspect]
     Active Substance: MIRTAZAPINE
     Route: 048
  9. RAMIPRIL [Suspect]
     Active Substance: RAMIPRIL
     Indication: Product used for unknown indication
     Dosage: 7 DOSAGE FORM, DAILY
     Route: 048
     Dates: end: 20250122
  10. RAMIPRIL [Suspect]
     Active Substance: RAMIPRIL
     Route: 048
  11. LEVOTHYROXINE [Suspect]
     Active Substance: LEVOTHYROXINE
     Indication: Product used for unknown indication
     Route: 048
     Dates: end: 20250122
  12. LEVOTHYROXINE [Suspect]
     Active Substance: LEVOTHYROXINE
     Route: 048

REACTIONS (14)
  - Salivary hypersecretion [Recovering/Resolving]
  - Confusional state [Recovering/Resolving]
  - Hallucination, visual [Recovering/Resolving]
  - Tachycardia [Recovering/Resolving]
  - Serotonin syndrome [Recovering/Resolving]
  - Dysarthria [Recovering/Resolving]
  - Abnormal behaviour [Recovering/Resolving]
  - Delirium [Recovering/Resolving]
  - Electrocardiogram QT prolonged [Recovering/Resolving]
  - Cerebellar atrophy [Recovering/Resolving]
  - Drug level increased [Recovering/Resolving]
  - Restlessness [Recovering/Resolving]
  - Overdose [Unknown]
  - Agitation [Recovering/Resolving]

NARRATIVE: CASE EVENT DATE: 20250122
